FAERS Safety Report 9180533 (Version 2)
Quarter: 2013Q2

REPORT INFORMATION
  Report Type: Spontaneous
  Country: JP (occurrence: None)
  Receive Date: 20130320
  Receipt Date: 20130423
  Transmission Date: 20140414
  Serious: Yes (Hospitalization)
  Sender: FDA-Public Use
  Company Number: SPI201300177

PATIENT
  Age: 73 Year
  Sex: Male

DRUGS (11)
  1. AMITIZA (LUBIPROSTONE) CAPSULE, 24 MCG [Suspect]
     Indication: CONSTIPATION
     Route: 048
     Dates: start: 20130110
  2. HUMALOG (INSULIN LISPRO) [Suspect]
     Indication: DIABETES MELLITUS
     Route: 058
  3. TSUMURA MASHININGAN (MASHININGAN) [Concomitant]
  4. PARIET (RABEPRAZOLE SODIUM) [Concomitant]
  5. OLMETEC (OLMESARTAN MEDOXOMIL) [Concomitant]
  6. EPADEL (ETHYL ICOSAPENTATE) [Concomitant]
  7. NIFEDIPINE (NIFEDIPINE) (NIFEDIPINE) [Concomitant]
  8. SALOBEL (ALLOPURINOL) [Concomitant]
  9. THYRADIN S (LEVOTHYROXINE SODIUM) [Concomitant]
  10. THEOLONG (THEOPHYLLINE) [Concomitant]
  11. PLAVIX (CLOPIDOGREL SULFATE) [Concomitant]

REACTIONS (3)
  - Hypoglycaemia [None]
  - Cerebral infarction [None]
  - Transient ischaemic attack [None]
